FAERS Safety Report 9786673 (Version 1)
Quarter: 2013Q4

REPORT INFORMATION
  Report Type: Spontaneous
  Country: SI (occurrence: SI)
  Receive Date: 20131227
  Receipt Date: 20131227
  Transmission Date: 20140711
  Serious: Yes (Other)
  Sender: FDA-Public Use
  Company Number: SI-MYLANLABS-2013S1028484

PATIENT
  Age: 80 Year
  Sex: Male

DRUGS (6)
  1. TRAZODONE [Suspect]
     Dosage: 50MG, THEN TITRATED TO 100MG ON 2ND DAY
     Route: 065
  2. TRAZODONE [Interacting]
     Dosage: 100MG ON 2ND DAY, THEN TITRATED TO 150MG DAILY AT BEDTIME ON 3RD DAY
     Route: 065
  3. TRAZODONE [Interacting]
     Dosage: 150MG DAILY AT BEDTIME ON 3RD DAY
     Route: 065
  4. VESICARE [Interacting]
     Indication: HYPERTONIC BLADDER
     Dosage: 5MG DAILY IN MORNING
     Route: 065
  5. ZOLPIDEM [Concomitant]
     Dosage: 5MG DAILY
     Route: 065
  6. ENALAPRIL [Concomitant]
     Dosage: 10MG DAILY
     Route: 065

REACTIONS (3)
  - Delirium [Recovered/Resolved]
  - Hallucination [Recovered/Resolved]
  - Drug interaction [Recovered/Resolved]
